FAERS Safety Report 16260537 (Version 2)
Quarter: 2019Q2

REPORT INFORMATION
  Report Type: Spontaneous
  Country: CN (occurrence: CN)
  Receive Date: 20190501
  Receipt Date: 20190510
  Transmission Date: 20190711
  Serious: Yes (Other)
  Sender: FDA-Public Use
  Company Number: CN-PFIZER INC-2019186234

PATIENT
  Age: 62 Year
  Sex: Female

DRUGS (6)
  1. PIPERACILLIN/TAZOBACTAM [Suspect]
     Active Substance: PIPERACILLIN SODIUM\TAZOBACTAM SODIUM
     Indication: ANTI-INFECTIVE THERAPY
     Dosage: 3 G, 3X/DAY
     Route: 041
     Dates: start: 20180118, end: 20180129
  2. GLUCOSE AND SODIUM CHLORIDE [Concomitant]
     Indication: NUTRITIONAL SUPPLEMENTATION
     Dosage: 500 ML, 1X/DAY
     Route: 041
     Dates: start: 20180120, end: 20180202
  3. LANSOPRAZOLE. [Concomitant]
     Active Substance: LANSOPRAZOLE
     Indication: GASTRIC PH DECREASED
     Dosage: 30 MG, 2X/DAY
     Route: 041
     Dates: start: 20180113, end: 20180202
  4. INSULIN [Concomitant]
     Active Substance: INSULIN NOS
     Indication: NUTRITIONAL SUPPLEMENTATION
     Dosage: 24 IU, 1X/DAY
     Route: 041
     Dates: start: 20180120, end: 20180202
  5. GLUCOSE INJECTION [Concomitant]
     Active Substance: DEXTROSE
     Indication: NUTRITIONAL SUPPLEMENTATION
     Dosage: 200 ML, 1X/DAY
     Route: 041
     Dates: start: 20180120, end: 20180202
  6. SODIUM CHLORIDE. [Concomitant]
     Active Substance: SODIUM CHLORIDE
     Dosage: 100 ML, 3X/DAY
     Route: 041
     Dates: start: 20180118, end: 20180129

REACTIONS (1)
  - Drug-induced liver injury [Recovering/Resolving]
